FAERS Safety Report 4864303-9 (Version None)
Quarter: 2005Q4

REPORT INFORMATION
  Report Type: 
  Country: None (occurrence: None)
  Receive Date: 20051222
  Receipt Date: 20051005
  Transmission Date: 20060501
  Serious: Yes (Hospitalization, Other)
  Sender: FDA-Public Use
  Company Number: US-MERCK-0510USA04478

PATIENT
  Age: 76 Year
  Sex: Female
  Weight: 95 kg

DRUGS (7)
  1. VIOXX [Suspect]
     Indication: ARTHRALGIA
     Route: 048
     Dates: start: 20010304, end: 20011227
  2. VIOXX [Suspect]
     Indication: JOINT SWELLING
     Route: 048
     Dates: start: 20010304, end: 20011227
  3. DETROL [Concomitant]
     Route: 065
  4. LEVAQUIN [Concomitant]
     Route: 065
  5. MIRAPEX [Concomitant]
     Route: 065
  6. NADOLOL [Concomitant]
     Route: 065
  7. [THERAPY UNSPECIFIED] [Concomitant]
     Route: 065

REACTIONS (4)
  - ATRIAL FIBRILLATION [None]
  - HAEMORRHAGE [None]
  - HEART RATE IRREGULAR [None]
  - ISCHAEMIC STROKE [None]
